FAERS Safety Report 19605961 (Version 2)
Quarter: 2021Q3

REPORT INFORMATION
  Report Type: Spontaneous
  Country: JP (occurrence: JP)
  Receive Date: 20210723
  Receipt Date: 20210723
  Transmission Date: 20211014
  Serious: Yes (Other)
  Sender: FDA-Public Use
  Company Number: JP-ASTRAZENECA-2021A515035

PATIENT
  Age: 70 Year
  Sex: Male
  Weight: 82 kg

DRUGS (3)
  1. IMFINZI [Suspect]
     Active Substance: DURVALUMAB
     Dosage: 810 MG PER TWO WEEKS
     Route: 042
     Dates: start: 20191101, end: 20201023
  2. INFLUENZA [Concomitant]
     Active Substance: INFLUENZA VIRUS VACCINE
     Indication: ANTIVIRAL PROPHYLAXIS
  3. PNEUMOVAX NP [Suspect]
     Active Substance: PNEUMOCOCCAL VACCINE, POLYVALENT 23
     Route: 065
     Dates: start: 202103

REACTIONS (2)
  - Eczema asteatotic [Recovered/Resolved]
  - Pneumonitis [Recovered/Resolved]

NARRATIVE: CASE EVENT DATE: 20200213
